FAERS Safety Report 6457921-8 (Version None)
Quarter: 2009Q4

REPORT INFORMATION
  Report Type: 
  Country: None (occurrence: None)
  Receive Date: 20091125
  Receipt Date: 20091116
  Transmission Date: 20100525
  Serious: Yes (Other)
  Sender: FDA-Public Use
  Company Number: US-CELGENEUS-163-21880-09111300

PATIENT
  Sex: Male

DRUGS (3)
  1. REVLIMID [Suspect]
     Indication: MULTIPLE MYELOMA
     Route: 048
     Dates: start: 20090301, end: 20090501
  2. REVLIMID [Suspect]
     Route: 048
     Dates: start: 20080801, end: 20090301
  3. REVLIMID [Suspect]
     Route: 048
     Dates: start: 20080721, end: 20080801

REACTIONS (1)
  - CHOLECYSTECTOMY [None]
